FAERS Safety Report 14830613 (Version 1)
Quarter: 2018Q2

REPORT INFORMATION
  Report Type: Spontaneous
  Country: US (occurrence: US)
  Receive Date: 20180430
  Receipt Date: 20180430
  Transmission Date: 20180711
  Serious: No
  Sender: FDA-Public Use
  Company Number: US-SA-2018SA080544

PATIENT
  Age: 63 Year
  Sex: Female

DRUGS (2)
  1. ALIROCUMAB PREFILLED PEN [Suspect]
     Active Substance: ALIROCUMAB
     Indication: BLOOD CHOLESTEROL
  2. PRALUENT [Suspect]
     Active Substance: ALIROCUMAB
     Indication: BLOOD CHOLESTEROL
     Route: 058

REACTIONS (5)
  - Device use issue [Unknown]
  - Injection site swelling [Unknown]
  - Disturbance in attention [Unknown]
  - Product administered at inappropriate site [Unknown]
  - Injury associated with device [Unknown]

NARRATIVE: CASE EVENT DATE: 20180314
